FAERS Safety Report 23604869 (Version 1)
Quarter: 2024Q1

REPORT INFORMATION
  Report Type: Spontaneous
  Country: SI (occurrence: SI)
  Receive Date: 20240307
  Receipt Date: 20240307
  Transmission Date: 20240409
  Serious: Yes (Other)
  Sender: FDA-Public Use
  Company Number: SI-SUN PHARMACEUTICAL INDUSTRIES LTD-2024R1-434714

PATIENT
  Age: 2 Year
  Sex: Male

DRUGS (2)
  1. PENICILLIN G [Suspect]
     Active Substance: PENICILLIN G
     Indication: Evidence based treatment
     Dosage: UNK, 1 MILLION UNITS EVERY 6 H
     Route: 042
  2. CLINDAMYCIN [Suspect]
     Active Substance: CLINDAMYCIN
     Indication: Antibiotic therapy
     Dosage: 150 MILLIGRAM, QID
     Route: 065

REACTIONS (1)
  - Condition aggravated [Unknown]
